FAERS Safety Report 4996116-1 (Version None)
Quarter: 2006Q2

REPORT INFORMATION
  Report Type: 
  Country: None (occurrence: None)
  Receive Date: 20060504
  Receipt Date: 20060421
  Transmission Date: 20061013
  Serious: Yes (Other)
  Sender: FDA-Public Use
  Company Number: 2006056097

PATIENT
  Age: 35 Year
  Sex: Female

DRUGS (1)
  1. ESTRADIOL [Suspect]
     Indication: ILL-DEFINED DISORDER
     Dosage: (100 MG, EVERY 2 WEEKS), TRANSDERMAL
     Route: 062

REACTIONS (2)
  - AMNESIA [None]
  - CONCOMITANT DISEASE AGGRAVATED [None]
